FAERS Safety Report 6210011-1 (Version None)
Quarter: 2009Q2

REPORT INFORMATION
  Report Type: 
  Country: None (occurrence: None)
  Receive Date: 20090601
  Receipt Date: 20090520
  Transmission Date: 20091009
  Serious: Yes (Other)
  Sender: FDA-Public Use
  Company Number: JP-WYE-H09506309

PATIENT
  Age: 71 Year
  Sex: Female

DRUGS (2)
  1. ANCARON [Suspect]
     Indication: ATRIAL FIBRILLATION
     Route: 065
     Dates: start: 20070101
  2. ANCARON [Suspect]
     Indication: ATRIAL FLUTTER

REACTIONS (2)
  - HYPOTHYROIDISM [None]
  - SICK SINUS SYNDROME [None]
